FAERS Safety Report 15476518 (Version 1)
Quarter: 2018Q4

REPORT INFORMATION
  Report Type: Report from Study
  Country: US (occurrence: US)
  Receive Date: 20181009
  Receipt Date: 20181009
  Transmission Date: 20190205
  Serious: Yes (Hospitalization)
  Sender: FDA-Public Use
  Company Number: US-ROCHE-2191946

PATIENT
  Age: 15 Year
  Sex: Female
  Weight: 47.9 kg

DRUGS (6)
  1. TOFACITINIB [Concomitant]
     Active Substance: TOFACITINIB
     Indication: JUVENILE IDIOPATHIC ARTHRITIS
     Route: 065
     Dates: start: 20180924
  2. INDOMETHACIN. [Concomitant]
     Active Substance: INDOMETHACIN
     Indication: PAIN
     Route: 065
     Dates: start: 20160706
  3. HYDROXYCHLOROQUINE [Suspect]
     Active Substance: HYDROXYCHLOROQUINE
     Indication: PRODUCT USED FOR UNKNOWN INDICATION
     Route: 065
     Dates: start: 20180815
  4. TOCILIZUMAB. [Suspect]
     Active Substance: TOCILIZUMAB
     Indication: JUVENILE IDIOPATHIC ARTHRITIS
     Route: 065
     Dates: start: 20180812
  5. CEFTRIAXONE. [Concomitant]
     Active Substance: CEFTRIAXONE
     Indication: PYELONEPHRITIS
     Route: 065
     Dates: start: 20180816, end: 20180817
  6. AUGMENTIN [Concomitant]
     Active Substance: AMOXICILLIN\CLAVULANATE POTASSIUM
     Indication: PYELONEPHRITIS
     Route: 065
     Dates: start: 20180817, end: 20180829

REACTIONS (2)
  - Infection [Recovered/Resolved]
  - Anti-infective therapy [Recovered/Resolved]

NARRATIVE: CASE EVENT DATE: 20180815
